FAERS Safety Report 20781168 (Version 2)
Quarter: 2022Q2

REPORT INFORMATION
  Report Type: Spontaneous
  Country: JP (occurrence: JP)
  Receive Date: 20220504
  Receipt Date: 20220613
  Transmission Date: 20220721
  Serious: Yes (Hospitalization)
  Sender: FDA-Public Use
  Company Number: JP-Atnahs Limited-ATNAHS20220405360

PATIENT
  Age: 84 Year
  Sex: Male

DRUGS (2)
  1. BONVIVA [Suspect]
     Active Substance: IBANDRONATE SODIUM
     Indication: Osteoporosis
     Route: 042
     Dates: start: 2021, end: 2022
  2. BONVIVA [Suspect]
     Active Substance: IBANDRONATE SODIUM
     Route: 042
     Dates: start: 20220430, end: 2022

REACTIONS (1)
  - Feeding disorder [Recovered/Resolved]

NARRATIVE: CASE EVENT DATE: 20220101
